FAERS Safety Report 21657911 (Version 1)
Quarter: 2022Q4

REPORT INFORMATION
  Report Type: Spontaneous
  Country: US (occurrence: None)
  Receive Date: 20221128
  Receipt Date: 20221128
  Transmission Date: 20230112
  Serious: Yes (Other)
  Sender: FDA-Public Use
  Company Number: None

PATIENT
  Age: 82 Year
  Sex: Male
  Weight: 78.75 kg

DRUGS (9)
  1. LEQVIO [Suspect]
     Active Substance: INCLISIRAN SODIUM
  2. Torsemide 10 mg qd or bid prn [Concomitant]
  3. Losartan 100 mg qd [Concomitant]
  4. Coreg 12.5 mg bid [Concomitant]
  5. Cardura 1 mg bid [Concomitant]
  6. Cymbalta 20 mg bid [Concomitant]
  7. Aspirin 81 mg qd [Concomitant]
  8. Tramadol HCL 50 mg qd but only prn (Very, very seldom) [Concomitant]
  9. Magnesium 400 mg qd [Concomitant]

REACTIONS (2)
  - Blood pressure systolic increased [None]
  - Blood pressure diastolic increased [None]

NARRATIVE: CASE EVENT DATE: 20221128
